FAERS Safety Report 6643291-9 (Version None)
Quarter: 2010Q1

REPORT INFORMATION
  Report Type: 
  Country: None (occurrence: None)
  Receive Date: 20100319
  Receipt Date: 20100311
  Transmission Date: 20100710
  Serious: Yes (Hospitalization)
  Sender: FDA-Public Use
  Company Number: GXKR2010KR02968

PATIENT
  Age: 23 Year
  Sex: Male

DRUGS (4)
  1. ISONIAZID [Suspect]
     Indication: TUBERCULOSIS GASTROINTESTINAL
     Route: 065
  2. RIFAMPICIN [Suspect]
     Indication: TUBERCULOSIS GASTROINTESTINAL
     Route: 065
  3. ETHAMBUTOL (NGX) [Suspect]
     Indication: TUBERCULOSIS GASTROINTESTINAL
     Route: 065
  4. PYRAZINAMIDE [Suspect]
     Indication: TUBERCULOSIS GASTROINTESTINAL
     Route: 065

REACTIONS (5)
  - ABDOMINAL PAIN UPPER [None]
  - BILIARY DRAINAGE [None]
  - JAUNDICE CHOLESTATIC [None]
  - PARADOXICAL DRUG REACTION [None]
  - TUBERCULOSIS [None]
